FAERS Safety Report 6258078-9 (Version None)
Quarter: 2009Q3

REPORT INFORMATION
  Report Type: 
  Country: None (occurrence: None)
  Receive Date: 20090707
  Receipt Date: 20090626
  Transmission Date: 20100115
  Serious: Yes (Other)
  Sender: FDA-Public Use
  Company Number: PHHY2009CA26153

PATIENT
  Sex: Female

DRUGS (1)
  1. CLOZARIL [Suspect]
     Dosage: UNK
     Dates: start: 20090115

REACTIONS (3)
  - ANTIPSYCHOTIC DRUG LEVEL INCREASED [None]
  - DIZZINESS [None]
  - FALL [None]
